FAERS Safety Report 8009378-3 (Version None)
Quarter: 2011Q4

REPORT INFORMATION
  Report Type: 
  Country: None (occurrence: None)
  Receive Date: 20111227
  Receipt Date: 20111219
  Transmission Date: 20120403
  Serious: Yes (Death, Other)
  Sender: FDA-Public Use
  Company Number: US-AMGEN-USASP2011050042

PATIENT
  Age: 95 Year
  Sex: Female
  Weight: 210.4 kg

DRUGS (5)
  1. NPLATE [Suspect]
     Dosage: UNK
     Dates: start: 20110505
  2. NPLATE [Suspect]
     Dosage: UNK
     Dates: start: 20110415, end: 20110512
  3. AZATHIOPRINE [Concomitant]
  4. CORTICOSTEROIDS [Concomitant]
  5. NPLATE [Suspect]
     Indication: IDIOPATHIC THROMBOCYTOPENIC PURPURA
     Dosage: 2 MUG/KG, UNK
     Dates: start: 20110512, end: 20111130

REACTIONS (13)
  - LIVER FUNCTION TEST ABNORMAL [None]
  - PNEUMONIA [None]
  - MULTI-ORGAN FAILURE [None]
  - AORTIC STENOSIS [None]
  - THROMBOCYTOPENIA [None]
  - AORTIC ARTERIOSCLEROSIS [None]
  - PULMONARY HYPERTENSION [None]
  - HYPOTENSION [None]
  - MYOCARDIAL INFARCTION [None]
  - PULMONARY VALVE INCOMPETENCE [None]
  - MITRAL VALVE CALCIFICATION [None]
  - BUNDLE BRANCH BLOCK LEFT [None]
  - VENTRICULAR DYSFUNCTION [None]
